FAERS Safety Report 10239278 (Version 4)
Quarter: 2015Q2

REPORT INFORMATION
  Report Type: Spontaneous
  Country: GB (occurrence: GB)
  Receive Date: 20140616
  Receipt Date: 20150529
  Transmission Date: 20150821
  Serious: Yes (Other)
  Sender: FDA-Public Use
  Company Number: GB-PFIZER INC-2014158477

PATIENT
  Age: 74 Year
  Sex: Male
  Weight: 58 kg

DRUGS (11)
  1. TEMAZEPAM. [Concomitant]
     Active Substance: TEMAZEPAM
     Dosage: 10 MG, UNK
     Route: 048
     Dates: start: 20120203, end: 20150219
  2. FUROSEMIDE. [Concomitant]
     Active Substance: FUROSEMIDE
     Dosage: 40 MG, 1X/DAY
     Route: 042
     Dates: start: 20120202, end: 20120204
  3. PARACETAMOL [Concomitant]
     Active Substance: ACETAMINOPHEN
     Dosage: 1 G, 4X/DAY
     Route: 042
     Dates: start: 20120123, end: 20120219
  4. SALBUTAMOL [Suspect]
     Active Substance: ALBUTEROL
     Dosage: 2.5 MG, 4X/DAY
     Route: 050
     Dates: start: 20120123
  5. PIPERACILLIN [Concomitant]
     Active Substance: PIPERACILLIN
     Dosage: 4.5 G, 3X/DAY
     Route: 042
     Dates: start: 20120121
  6. EPIRUBICIN HCL [Suspect]
     Active Substance: EPIRUBICIN HYDROCHLORIDE
     Indication: GASTRIC CANCER
     Dosage: 90 MG UNIT DOSE (LATEST DOSE PRIOR TO SAE: 08NOV2011)
     Route: 042
     Dates: start: 20110927
  7. CIPROFLOXACIN. [Suspect]
     Active Substance: CIPROFLOXACIN
     Dosage: 400 MG, 2X/DAY
     Route: 042
     Dates: start: 20120203
  8. DALTEPARIN [Concomitant]
     Active Substance: DALTEPARIN
     Dosage: 5000 UNITS
     Route: 058
     Dates: start: 20120123, end: 20120219
  9. CISPLATIN. [Suspect]
     Active Substance: CISPLATIN
     Indication: GASTRIC CANCER
     Dosage: 107MG UNIT DOSE (LATEST DOSE PRIOR TO SAE: 08NOV2011)
     Route: 042
     Dates: start: 20110927
  10. AVASTIN [Suspect]
     Active Substance: BEVACIZUMAB
     Indication: GASTRIC CANCER
     Dosage: 521 MG, UNIT DOSE (LATEST DOSE PRIOR TO SAE: 08NOV2011)
     Route: 042
     Dates: start: 20110927
  11. XELODA [Suspect]
     Active Substance: CAPECITABINE
     Indication: GASTRIC CANCER
     Dosage: 2150 MG, UNK (2150 MG LATEST DOSE PRIOR TO SAE: 29NOV2011)
     Route: 048
     Dates: start: 20110927

REACTIONS (1)
  - Atrial fibrillation [Recovered/Resolved]

NARRATIVE: CASE EVENT DATE: 20120204
